FAERS Safety Report 9789760 (Version 1)
Quarter: 2013Q4

REPORT INFORMATION
  Report Type: Spontaneous
  Country: PL (occurrence: None)
  Receive Date: 20131227
  Receipt Date: 20131227
  Transmission Date: 20140711
  Serious: Yes (Hospitalization)
  Sender: FDA-Public Use
  Company Number: 2013MPI00838

PATIENT
  Sex: Female

DRUGS (1)
  1. ADCETRIS ( BRENTUXIMAB VEDOTIN) INJECTION [Suspect]
     Indication: HODGKIN^S DISEASE

REACTIONS (10)
  - Liver disorder [None]
  - Clostridial infection [None]
  - Intestinal obstruction [None]
  - Feeling abnormal [None]
  - Leukopenia [None]
  - Fungal infection [None]
  - Abdominal pain [None]
  - Pyrexia [None]
  - Cough [None]
  - Alopecia [None]
